FAERS Safety Report 5550915-6 (Version None)
Quarter: 2007Q4

REPORT INFORMATION
  Report Type: 
  Country: None (occurrence: None)
  Receive Date: 20071212
  Receipt Date: 20070521
  Transmission Date: 20080405
  Serious: No
  Sender: FDA-Public Use
  Company Number: US-AMGEN-KDL220220

PATIENT
  Sex: Male
  Weight: 79.5 kg

DRUGS (4)
  1. ENBREL [Suspect]
     Indication: PSORIASIS
     Route: 058
     Dates: start: 20070207, end: 20070410
  2. ASPIRIN [Concomitant]
  3. LEVOXYL [Concomitant]
  4. LIPITOR [Concomitant]

REACTIONS (1)
  - DECREASED IMMUNE RESPONSIVENESS [None]
